FAERS Safety Report 6366356-8 (Version None)
Quarter: 2009Q3

REPORT INFORMATION
  Report Type: 
  Country: None (occurrence: None)
  Receive Date: 20090915
  Receipt Date: 20090902
  Transmission Date: 20100115
  Serious: Yes (Hospitalization)
  Sender: FDA-Public Use
  Company Number: 2009AL005871

PATIENT
  Age: 79 Year
  Sex: Male

DRUGS (15)
  1. RAMIPRIL [Suspect]
     Indication: HYPERTENSION
     Dosage: 2.5 MG, QD, PO
     Route: 048
     Dates: start: 20070101, end: 20090818
  2. TRIAMCINOLONE ACETONIDE [Suspect]
     Indication: SEASONAL ALLERGY
     Dosage: 0.2 G, QD; NAS
     Route: 045
     Dates: start: 20090801
  3. AGGRENOC [Concomitant]
  4. ACETYLSALICYLIC ACID [Concomitant]
  5. LYRICA [Concomitant]
  6. NEXIUM [Concomitant]
  7. SPIRIVA [Concomitant]
  8. ACETYLCYSTEINE [Concomitant]
  9. LACTULOSE [Concomitant]
  10. LEVOTHYROXINE SODIUM [Concomitant]
  11. MIRTAZAPINE [Concomitant]
  12. SIMVASTATIN [Concomitant]
  13. OXYCODONE HCL [Concomitant]
  14. NALOXONE [Concomitant]
  15. TORSEMIDE [Concomitant]

REACTIONS (3)
  - ANGIOEDEMA [None]
  - HYPERTENSIVE CRISIS [None]
  - NO THERAPEUTIC RESPONSE [None]
